FAERS Safety Report 9340195 (Version 1)
Quarter: 2013Q2

REPORT INFORMATION
  Report Type: Spontaneous
  Country: US (occurrence: US)
  Receive Date: 20130610
  Receipt Date: 20130610
  Transmission Date: 20140414
  Serious: Yes (Hospitalization)
  Sender: FDA-Public Use
  Company Number: US-BRISTOL-MYERS SQUIBB COMPANY-18982413

PATIENT
  Age: 73 Year
  Sex: Female
  Weight: 61.22 kg

DRUGS (2)
  1. WARFARIN SODIUM [Suspect]
     Indication: CEREBROVASCULAR ACCIDENT
  2. WARFARIN SODIUM [Suspect]
     Indication: MYOCARDIAL INFARCTION

REACTIONS (1)
  - Atrial fibrillation [None]
